FAERS Safety Report 20368005 (Version 2)
Quarter: 2022Q1

REPORT INFORMATION
  Report Type: Report from Study
  Country: US (occurrence: US)
  Receive Date: 20220124
  Receipt Date: 20220222
  Transmission Date: 20220424
  Serious: Yes (Death, Hospitalization)
  Sender: FDA-Public Use
  Company Number: US-BIOGEN-2022BI01087761

PATIENT
  Sex: Female

DRUGS (1)
  1. VUMERITY [Suspect]
     Active Substance: DIROXIMEL FUMARATE
     Indication: Multiple sclerosis
     Route: 048
     Dates: start: 20210113

REACTIONS (5)
  - Urinary tract infection [Fatal]
  - Dysphagia [Fatal]
  - Unresponsive to stimuli [Unknown]
  - Weight decreased [Unknown]
  - Urinary incontinence [Unknown]
